FAERS Safety Report 14138477 (Version 1)
Quarter: 2017Q4

REPORT INFORMATION
  Report Type: Spontaneous
  Country: US (occurrence: US)
  Receive Date: 20171027
  Receipt Date: 20171027
  Transmission Date: 20180321
  Serious: Yes (Other)
  Sender: FDA-Public Use
  Company Number: US-ROCHE-1870353

PATIENT
  Age: 9 Year
  Sex: Male
  Weight: 29.51 kg

DRUGS (3)
  1. ACETAMINOFEN [Concomitant]
     Active Substance: ACETAMINOPHEN
     Indication: PYREXIA
     Dosage: PRN FOR FEVER ;ONGOING: YES
     Route: 048
     Dates: start: 20161218
  2. TAMIFLU [Suspect]
     Active Substance: OSELTAMIVIR PHOSPHATE
     Indication: INFLUENZA
     Dosage: FIRST DOSE AT 3 PM 6MG PER ML
     Route: 048
     Dates: start: 20161218, end: 20161218
  3. IBUPROFEN. [Concomitant]
     Active Substance: IBUPROFEN
     Indication: INFLUENZA
     Route: 065
     Dates: start: 20161218

REACTIONS (3)
  - Lip swelling [Recovering/Resolving]
  - Pyrexia [Not Recovered/Not Resolved]
  - Anaphylactic reaction [Recovering/Resolving]

NARRATIVE: CASE EVENT DATE: 20161218
